FAERS Safety Report 12194441 (Version 1)
Quarter: 2016Q1

REPORT INFORMATION
  Report Type: Spontaneous
  Country: US (occurrence: None)
  Receive Date: 20160318
  Receipt Date: 20160318
  Transmission Date: 20160526
  Serious: Yes (Life-Threatening)
  Sender: FDA-Public Use
  Company Number: None

PATIENT
  Age: 61 Year
  Sex: Female
  Weight: 78.93 kg

DRUGS (1)
  1. BUPROPION XL [Suspect]
     Active Substance: BUPROPION
     Indication: MAJOR DEPRESSION
     Dosage: 2012 - SEVERAL MONTHS
     Route: 048
     Dates: start: 2012

REACTIONS (2)
  - Product substitution issue [None]
  - Suicidal ideation [None]

NARRATIVE: CASE EVENT DATE: 2012
